FAERS Safety Report 7587806-5 (Version None)
Quarter: 2011Q3

REPORT INFORMATION
  Report Type: 
  Country: None (occurrence: None)
  Receive Date: 20110705
  Receipt Date: 20110623
  Transmission Date: 20111222
  Serious: No
  Sender: FDA-Public Use
  Company Number: US-BIOGENIDEC-2011BI023126

PATIENT
  Sex: Female

DRUGS (1)
  1. TYSABRI [Suspect]
     Indication: MULTIPLE SCLEROSIS
     Route: 042
     Dates: start: 20090406

REACTIONS (7)
  - NEUROMYELITIS OPTICA [None]
  - BALANCE DISORDER [None]
  - GENERAL SYMPTOM [None]
  - FALL [None]
  - ASTHENIA [None]
  - FATIGUE [None]
  - COORDINATION ABNORMAL [None]
